FAERS Safety Report 17996153 (Version 4)
Quarter: 2020Q4

REPORT INFORMATION
  Report Type: Spontaneous
  Country: US (occurrence: US)
  Receive Date: 20200708
  Receipt Date: 20201027
  Transmission Date: 20210113
  Serious: Yes (Other)
  Sender: FDA-Public Use
  Company Number: US-LEXICON PHARMACEUTICALS, INC-20-1606-00520

PATIENT
  Age: 64 Year
  Sex: Male

DRUGS (5)
  1. XERMELO [Suspect]
     Active Substance: TELOTRISTAT ETHYL
     Indication: NEOPLASM MALIGNANT
     Dates: start: 20200514
  2. TAMSULOSIN [Concomitant]
     Active Substance: TAMSULOSIN
  3. NORCO [Concomitant]
     Active Substance: ACETAMINOPHEN\HYDROCODONE BITARTRATE
  4. GLIPIZIDE. [Concomitant]
     Active Substance: GLIPIZIDE
  5. NITROGLYCERIN PATCH [Concomitant]
     Active Substance: NITROGLYCERIN

REACTIONS (10)
  - Surgery [Unknown]
  - Loss of consciousness [Recovered/Resolved]
  - Hypotension [Unknown]
  - Intentional product use issue [Unknown]
  - Cardiac pacemaker insertion [Unknown]
  - Procedural pain [Unknown]
  - Diarrhoea [Not Recovered/Not Resolved]
  - Constipation [Unknown]
  - Vomiting [Unknown]
  - Family stress [Unknown]

NARRATIVE: CASE EVENT DATE: 20200729
